FAERS Safety Report 9952721 (Version 1)
Quarter: 2014Q1

REPORT INFORMATION
  Report Type: Report from Study
  Country: US (occurrence: US)
  Receive Date: 20140304
  Receipt Date: 20140304
  Transmission Date: 20141002
  Serious: No
  Sender: FDA-Public Use
  Company Number: US-ABBVIE-13P-163-1074552-00

PATIENT
  Age: 65 Year
  Sex: Male

DRUGS (5)
  1. HUMIRA [Suspect]
     Indication: CROHN^S DISEASE
     Dates: start: 20121220
  2. ALLOPURINOL [Concomitant]
     Indication: GOUT
     Dosage: DAILY
  3. LIPITOR [Concomitant]
     Indication: BLOOD CHOLESTEROL INCREASED
     Dosage: DAILY
  4. GLIPIZIDE [Concomitant]
     Indication: DIABETES MELLITUS
     Dosage: DAILY
  5. PROMETHAZINE [Concomitant]
     Indication: ABDOMINAL DISCOMFORT

REACTIONS (1)
  - Fatigue [Recovered/Resolved]
